FAERS Safety Report 23177090 (Version 1)
Quarter: 2023Q4

REPORT INFORMATION
  Report Type: Report from Study
  Country: US (occurrence: US)
  Receive Date: 20231113
  Receipt Date: 20231113
  Transmission Date: 20240110
  Serious: Yes (Death)
  Sender: FDA-Public Use
  Company Number: US-MIRATI-MT2023PM05275

PATIENT
  Sex: Male
  Weight: 56.236 kg

DRUGS (8)
  1. KRAZATI [Suspect]
     Active Substance: ADAGRASIB
     Indication: Lung neoplasm malignant
     Dosage: 600 MG, BID
     Route: 048
     Dates: start: 202309, end: 20230927
  2. MIRALAX [Concomitant]
     Active Substance: POLYETHYLENE GLYCOL 3350
  3. REMERON SOLTAB [Concomitant]
     Active Substance: MIRTAZAPINE
  4. SENNA LAXATIVE [Concomitant]
     Active Substance: SENNOSIDES
  5. LUMIGAN [Concomitant]
     Active Substance: BIMATOPROST
  6. TIMOPTIC [Concomitant]
     Active Substance: TIMOLOL MALEATE
  7. VALCYTE [Concomitant]
     Active Substance: VALGANCICLOVIR HYDROCHLORIDE
  8. THIAMINE MONONITRATE [Concomitant]
     Active Substance: THIAMINE MONONITRATE

REACTIONS (1)
  - Death [Fatal]
